FAERS Safety Report 8604417-0 (Version None)
Quarter: 2012Q3

REPORT INFORMATION
  Report Type: 
  Country: None (occurrence: None)
  Receive Date: 20120820
  Receipt Date: 20120810
  Transmission Date: 20120928
  Serious: Yes (Other)
  Sender: FDA-Public Use
  Company Number: US-JNJFOC-20120700020

PATIENT
  Sex: Female
  Weight: 81.65 kg

DRUGS (8)
  1. ZYRTEC [Suspect]
     Route: 048
  2. ZYRTEC [Suspect]
     Indication: PRURITUS
     Route: 048
     Dates: start: 20120610, end: 20120626
  3. LISINOPRIL [Concomitant]
     Indication: HYPERTENSION
     Dosage: SINCE 15 YEARS
     Route: 065
  4. WELLBUTRIN SR [Concomitant]
     Indication: SEASONAL AFFECTIVE DISORDER
     Dosage: SINCE 5 YEARS
     Route: 065
  5. LODINE [Concomitant]
     Indication: RHEUMATOID ARTHRITIS
     Dosage: SINCE 10 YEARS
     Route: 065
  6. LASIX [Concomitant]
     Indication: HYPERTENSION
     Dosage: FOR 15 YEARS
     Route: 065
  7. METFORMIN HYDROCHLORIDE [Concomitant]
     Indication: TYPE 2 DIABETES MELLITUS
     Dosage: SINE 6 YEARS
     Route: 065
  8. LANTUS [Concomitant]
     Indication: DIABETES MELLITUS
     Dosage: 6 UNITS DAILY
     Route: 065

REACTIONS (8)
  - THINKING ABNORMAL [None]
  - OFF LABEL USE [None]
  - HYPERSOMNIA [None]
  - DEPRESSION [None]
  - FATIGUE [None]
  - SUICIDAL IDEATION [None]
  - HALLUCINATION, AUDITORY [None]
  - THERAPEUTIC RESPONSE UNEXPECTED [None]
